FAERS Safety Report 4337721-5 (Version None)
Quarter: 2004Q2

REPORT INFORMATION
  Report Type: 
  Country: None (occurrence: None)
  Receive Date: 20040413
  Receipt Date: 20040402
  Transmission Date: 20050107
  Serious: Yes (Hospitalization)
  Sender: FDA-Public Use
  Company Number: GB-ROCHE-363539

PATIENT
  Age: 65 Year
  Sex: Female

DRUGS (7)
  1. CAPECITABINE [Suspect]
     Route: 048
     Dates: start: 20040319
  2. EPIRUBICIN [Suspect]
     Route: 040
     Dates: start: 20040319
  3. OXALIPLATIN [Suspect]
     Route: 042
     Dates: start: 20040319
  4. THYROXINE [Concomitant]
  5. LANSOPRAZOLE [Concomitant]
  6. VITAMIN B-12 [Concomitant]
  7. BENDROFLUAZIDE [Concomitant]

REACTIONS (3)
  - DYSAESTHESIA [None]
  - HOARSENESS [None]
  - PARAESTHESIA [None]
